FAERS Safety Report 6294903-3 (Version None)
Quarter: 2009Q3

REPORT INFORMATION
  Report Type: 
  Country: None (occurrence: None)
  Receive Date: 20090803
  Receipt Date: 20090730
  Transmission Date: 20100115
  Serious: Yes (Life-Threatening, Disabling)
  Sender: FDA-Public Use
  Company Number: DE-B.I. PHARMACEUTICALS,INC./RIDGEFIELD-2009-DE-05178DE

PATIENT
  Sex: Male
  Weight: 75 kg

DRUGS (2)
  1. AGGRENOX [Suspect]
     Indication: TRANSIENT ISCHAEMIC ATTACK
     Dosage: 2 ANZ
  2. VOTUM 10 [Concomitant]
     Indication: TRANSIENT ISCHAEMIC ATTACK

REACTIONS (2)
  - CEREBRAL HAEMORRHAGE [None]
  - DISABILITY [None]
